FAERS Safety Report 11446188 (Version 4)
Quarter: 2016Q2

REPORT INFORMATION
  Report Type: Spontaneous
  Country: US (occurrence: US)
  Receive Date: 20150902
  Receipt Date: 20160614
  Transmission Date: 20160815
  Serious: No
  Sender: FDA-Public Use
  Company Number: US-ACTELION PHARMACEUTICALS US, INC.-A-NJ2015-121574

PATIENT
  Age: 72 Year
  Sex: Female

DRUGS (6)
  1. OPSUMIT [Suspect]
     Active Substance: MACITENTAN
     Indication: PULMONARY ARTERIAL HYPERTENSION
     Dosage: 10 MG, QD
     Route: 048
     Dates: start: 20141023
  2. TREPROSTINIL DIOLAMIN [Suspect]
     Active Substance: TREPROSTINIL DIOLAMINE
     Indication: PRODUCT USED FOR UNKNOWN INDICATION
     Dosage: 2.125 MG, TID
     Route: 065
  3. WARFARIN [Concomitant]
     Active Substance: WARFARIN
  4. TREPROSTINIL DIOLAMIN [Suspect]
     Active Substance: TREPROSTINIL DIOLAMINE
     Dosage: 1.75 MG, TID
     Route: 065
  5. OXYGEN. [Concomitant]
     Active Substance: OXYGEN
  6. COUMADIN [Concomitant]
     Active Substance: WARFARIN SODIUM

REACTIONS (16)
  - Rhinitis [Unknown]
  - Cataract [Unknown]
  - Decreased appetite [Unknown]
  - Vomiting [Unknown]
  - Diarrhoea [Unknown]
  - Retching [Unknown]
  - Nausea [Unknown]
  - Eating disorder [Unknown]
  - Dysgeusia [Unknown]
  - Sneezing [Unknown]
  - Paraesthesia [Unknown]
  - Weight decreased [Unknown]
  - Abdominal pain [Unknown]
  - Headache [Unknown]
  - Dyspnoea [Unknown]
  - Hypersensitivity [Unknown]
